FAERS Safety Report 21584767 (Version 3)
Quarter: 2023Q2

REPORT INFORMATION
  Report Type: Spontaneous
  Country: US (occurrence: US)
  Receive Date: 20221111
  Receipt Date: 20230606
  Transmission Date: 20230721
  Serious: Yes (Other)
  Sender: FDA-Public Use
  Company Number: US-BAYER-2022A154483

PATIENT
  Age: 84 Year
  Sex: Female

DRUGS (1)
  1. KERENDIA [Suspect]
     Active Substance: FINERENONE
     Dosage: 10 MG
     Dates: start: 20220823

REACTIONS (2)
  - Glomerular filtration rate decreased [None]
  - Dehydration [None]

NARRATIVE: CASE EVENT DATE: 20220101
